FAERS Safety Report 16273262 (Version 1)
Quarter: 2019Q2

REPORT INFORMATION
  Report Type: Report from Study
  Country: CA (occurrence: CA)
  Receive Date: 20190506
  Receipt Date: 20190506
  Transmission Date: 20190711
  Serious: Yes (Hospitalization, Other)
  Sender: FDA-Public Use
  Company Number: CA-TEVA-2019-CA-1046278

PATIENT
  Age: 56 Year
  Sex: Female

DRUGS (8)
  1. SANDOSTATIN [Suspect]
     Active Substance: OCTREOTIDE ACETATE
     Route: 030
  2. BISOPROLOL [Suspect]
     Active Substance: BISOPROLOL
     Indication: PRODUCT USED FOR UNKNOWN INDICATION
     Route: 065
  3. SANDOSTATIN [Suspect]
     Active Substance: OCTREOTIDE ACETATE
     Indication: NEUROENDOCRINE TUMOUR
     Route: 030
  4. SANDOSTATIN [Suspect]
     Active Substance: OCTREOTIDE ACETATE
     Dosage: 200 MICROGRAM DAILY;
     Route: 058
  5. LISINOPRIL. [Concomitant]
     Active Substance: LISINOPRIL
     Indication: PRODUCT USED FOR UNKNOWN INDICATION
     Route: 065
  6. SANDOSTATIN [Suspect]
     Active Substance: OCTREOTIDE ACETATE
     Route: 030
  7. SANDOSTATIN [Suspect]
     Active Substance: OCTREOTIDE ACETATE
     Route: 030
  8. SANDOSTATIN [Suspect]
     Active Substance: OCTREOTIDE ACETATE
     Route: 030

REACTIONS (11)
  - Body temperature decreased [Recovering/Resolving]
  - Heart rate decreased [Recovering/Resolving]
  - Blood pressure diastolic increased [Recovering/Resolving]
  - Hepatic lesion [Recovering/Resolving]
  - Blood pressure increased [Recovering/Resolving]
  - Blood pressure systolic decreased [Recovering/Resolving]
  - Injection site pain [Recovering/Resolving]
  - Blood pressure systolic increased [Recovering/Resolving]
  - Bowel movement irregularity [Recovering/Resolving]
  - Heart rate increased [Recovering/Resolving]
  - Prostatomegaly [Recovering/Resolving]
